FAERS Safety Report 8010417 (Version 5)
Quarter: 2012Q4

REPORT INFORMATION
  Report Type: 
  Country: GR (occurrence: GR)
  Receive Date: 20110627
  Receipt Date: 20120925
  Transmission Date: 20130627
  Serious: Yes (Other)
  Sender: FDA-Public Use
  Company Number: GR-AMGEN-GRCSP2011031223

PATIENT
  Age: 88 Year
  Sex: Female
  Weight: 49 kg

DRUGS (6)
  1. PROLIA [Suspect]
     Indication: OSTEOPOROSIS
     Dosage: 60 mg, q6mo
     Dates: start: 20110413
  2. DIGOXIN [Concomitant]
     Dosage: UNK
     Route: 048
     Dates: start: 2006
  3. LASIX                              /00032601/ [Concomitant]
     Dosage: UNK
     Route: 048
     Dates: start: 2006
  4. DALZAD [Concomitant]
     Dosage: 160 mg, UNK
     Route: 048
     Dates: start: 2006
  5. ALPHA D3 [Concomitant]
     Dosage: UNK UNK, qd
     Route: 048
     Dates: start: 20110412
  6. SINTROM [Concomitant]
     Dosage: UNK
     Route: 048
     Dates: start: 2006

REACTIONS (3)
  - Musculoskeletal pain [Recovered/Resolved]
  - Bedridden [Recovered/Resolved]
  - Mobility decreased [Recovered/Resolved]
